FAERS Safety Report 12079719 (Version 2)
Quarter: 2016Q1

REPORT INFORMATION
  Report Type: Spontaneous
  Country: JP (occurrence: JP)
  Receive Date: 20160216
  Receipt Date: 20160225
  Transmission Date: 20160526
  Serious: Yes (Other)
  Sender: FDA-Public Use
  Company Number: JP-TEVA-633243ISR

PATIENT
  Sex: Female

DRUGS (2)
  1. FILGRASTIM BS INJ. ^NK^ [Suspect]
     Active Substance: FILGRASTIM
     Route: 065
  2. PACLITAXEL ^NK^ [Suspect]
     Active Substance: PACLITAXEL
     Indication: OVARIAN CANCER
     Route: 065

REACTIONS (1)
  - Interstitial lung disease [Recovering/Resolving]
